FAERS Safety Report 19485984 (Version 1)
Quarter: 2021Q3

REPORT INFORMATION
  Report Type: Spontaneous
  Country: US (occurrence: US)
  Receive Date: 20210701
  Receipt Date: 20210701
  Transmission Date: 20211014
  Serious: No
  Sender: FDA-Public Use
  Company Number: None

PATIENT
  Age: 66 Year
  Sex: Male

DRUGS (2)
  1. ROSUVASTATIN (ROSUVASTATIN CA 40MG TAB) [Suspect]
     Active Substance: ROSUVASTATIN CALCIUM
     Indication: PRODUCT USED FOR UNKNOWN INDICATION
     Dates: start: 20190101, end: 20210415
  2. ABIRATERONE (ABIRATERONE ACETATE 250MG TAB) [Suspect]
     Active Substance: ABIRATERONE ACETATE
     Indication: PROSTATE CANCER
     Dates: start: 20210201, end: 20210415

REACTIONS (3)
  - Drug interaction [None]
  - Acute kidney injury [None]
  - Rhabdomyolysis [None]

NARRATIVE: CASE EVENT DATE: 20210416
